FAERS Safety Report 10287201 (Version 2)
Quarter: 2014Q3

REPORT INFORMATION
  Report Type: Spontaneous
  Country: AU (occurrence: AU)
  Receive Date: 20140709
  Receipt Date: 20140730
  Transmission Date: 20150326
  Serious: Yes (Other)
  Sender: FDA-Public Use
  Company Number: AU-ASTRAZENECA-2014SE48339

PATIENT
  Age: 79 Year
  Weight: 52 kg

DRUGS (3)
  1. AMOXICILLIN SODIUM [Suspect]
     Active Substance: AMOXICILLIN SODIUM
     Indication: HELICOBACTER INFECTION
     Route: 048
  2. NEXIUM HP7 [Suspect]
     Active Substance: AMOXICILLIN\CLARITHROMYCIN\ESOMEPRAZOLE
     Indication: HELICOBACTER INFECTION
     Route: 048
  3. BIAXIN [Suspect]
     Active Substance: CLARITHROMYCIN
     Indication: HELICOBACTER INFECTION
     Route: 048

REACTIONS (2)
  - Tinnitus [Recovered/Resolved with Sequelae]
  - Deafness [Recovered/Resolved with Sequelae]
